FAERS Safety Report 10082945 (Version 1)
Quarter: 2014Q2

REPORT INFORMATION
  Report Type: Spontaneous
  Country: US (occurrence: US)
  Receive Date: 20140417
  Receipt Date: 20140417
  Transmission Date: 20141212
  Serious: Yes (Other)
  Sender: FDA-Public Use
  Company Number: US-AMGEN-USASP2014025574

PATIENT
  Sex: Female

DRUGS (5)
  1. XGEVA [Suspect]
     Indication: PROPHYLAXIS
     Dosage: UNK UNK, Q4WK
     Route: 065
     Dates: start: 20140311
  2. AMLODIPINE BESYLATE [Concomitant]
     Dosage: 10 MG, UNK
  3. LETROZOLE [Concomitant]
     Dosage: 2.5 MG, UNK
  4. CALCIUM [Concomitant]
     Dosage: 800 MG, UNK
  5. VITAMIN D3 [Concomitant]
     Dosage: 5000 UNIT, UNK

REACTIONS (8)
  - Oral bacterial infection [Unknown]
  - Toothache [Unknown]
  - Irritability [Unknown]
  - Confusional state [Unknown]
  - Visual impairment [Unknown]
  - Abdominal pain [Unknown]
  - Oral pain [Recovered/Resolved]
  - Headache [Unknown]
